FAERS Safety Report 8221847-X (Version None)
Quarter: 2012Q1

REPORT INFORMATION
  Report Type: 
  Country: None (occurrence: None)
  Receive Date: 20120315
  Receipt Date: 20120305
  Transmission Date: 20120608
  Serious: Yes (Other)
  Sender: FDA-Public Use
  Company Number: 2012SP012282

PATIENT
  Sex: Female

DRUGS (3)
  1. PEG-INTRON [Suspect]
     Indication: HEPATITIS C
     Dates: start: 20120101
  2. RIBAVIRIN [Suspect]
     Indication: HEPATITIS C
     Dates: start: 20120101
  3. VICTRELIS [Suspect]
     Indication: HEPATITIS C
     Dates: start: 20120129

REACTIONS (3)
  - HAEMATOCHEZIA [None]
  - HEADACHE [None]
  - EPISTAXIS [None]
